FAERS Safety Report 7897270 (Version 6)
Quarter: 2013Q3

REPORT INFORMATION
  Report Type: Report from Study
  Country: US (occurrence: US)
  Receive Date: 20110413
  Receipt Date: 20130715
  Transmission Date: 20140515
  Serious: Yes (Hospitalization)
  Sender: FDA-Public Use
  Company Number: US-BRISTOL-MYERS SQUIBB COMPANY-15654874

PATIENT
  Age: 67 Year
  Sex: Male

DRUGS (5)
  1. SAXAGLIPTIN [Suspect]
     Indication: TYPE 2 DIABETES MELLITUS
     Dosage: LAST DOSE ON 29MAR2011,INTERRUPT ON 29MAR2011.
     Dates: start: 20110301, end: 20110329
  2. METFORMIN HCL [Suspect]
     Indication: TYPE 2 DIABETES MELLITUS
     Dates: end: 20110331
  3. ACTOS [Suspect]
     Indication: TYPE 2 DIABETES MELLITUS
     Dates: end: 20110331
  4. BENAZEPRIL HCL [Suspect]
  5. ASPIRIN [Concomitant]
     Dosage: 1DF={100MG

REACTIONS (1)
  - Renal failure acute [Recovered/Resolved]
